FAERS Safety Report 24458798 (Version 1)
Quarter: 2024Q4

REPORT INFORMATION
  Report Type: Report from Study
  Country: KG (occurrence: KG)
  Receive Date: 20241018
  Receipt Date: 20241018
  Transmission Date: 20250114
  Serious: No
  Sender: ROCHE
  Company Number: KG-ROCHE-3514972

PATIENT

DRUGS (1)
  1. RITUXIMAB [Suspect]
     Active Substance: RITUXIMAB
     Indication: Immune thrombocytopenia
     Dosage: FOR FOUR WEEKS.
     Route: 042

REACTIONS (2)
  - Headache [Unknown]
  - Infusion related reaction [Unknown]
